FAERS Safety Report 8299568-7 (Version None)
Quarter: 2012Q2

REPORT INFORMATION
  Report Type: 
  Country: None (occurrence: None)
  Receive Date: 20120419
  Receipt Date: 20120412
  Transmission Date: 20120825
  Serious: Yes (Other)
  Sender: FDA-Public Use
  Company Number: US-GLAXOSMITHKLINE-A0794736A

PATIENT
  Age: 81 Year
  Sex: Female
  Weight: 59.9 kg

DRUGS (4)
  1. GLIPIZIDE [Concomitant]
  2. LEVOTHYROXINE SODIUM [Concomitant]
  3. FOSINOPRIL SODIUM [Concomitant]
  4. AVANDIA [Suspect]
     Indication: DIABETES MELLITUS
     Dosage: 8MG PER DAY
     Route: 048
     Dates: start: 20050201, end: 20070302

REACTIONS (2)
  - CARDIAC FAILURE CONGESTIVE [None]
  - CARDIAC DISORDER [None]
